FAERS Safety Report 24947863 (Version 3)
Quarter: 2025Q1

REPORT INFORMATION
  Report Type: Report from Study
  Country: US (occurrence: US)
  Receive Date: 20250210
  Receipt Date: 20250324
  Transmission Date: 20250409
  Serious: Yes (Other)
  Sender: ACADIA PHARMACEUTICALS
  Company Number: US-ACADIA PHARMACEUTICALS INC.-ACA-2025-TRF-000890

PATIENT
  Sex: Female

DRUGS (3)
  1. DAYBUE [Suspect]
     Active Substance: TROFINETIDE
     Indication: Rett syndrome
     Dosage: 60 MILLILITER, BID
     Route: 048
  2. GUANFACINE [Concomitant]
     Active Substance: GUANFACINE
  3. LAMOTRIGINE [Concomitant]
     Active Substance: LAMOTRIGINE

REACTIONS (8)
  - Mental impairment [Not Recovered/Not Resolved]
  - Unevaluable event [Unknown]
  - Aggression [Not Recovered/Not Resolved]
  - Educational problem [Not Recovered/Not Resolved]
  - Abnormal behaviour [Not Recovered/Not Resolved]
  - Mobility decreased [Not Recovered/Not Resolved]
  - Developmental regression [Not Recovered/Not Resolved]
  - Anxiety [Not Recovered/Not Resolved]
